FAERS Safety Report 23267079 (Version 7)
Quarter: 2025Q3

REPORT INFORMATION
  Report Type: Spontaneous
  Country: US (occurrence: US)
  Receive Date: 20231206
  Receipt Date: 20250910
  Transmission Date: 20251021
  Serious: Yes (Other)
  Sender: CHATTEM
  Company Number: US-GLAXOSMITHKLINE-US2023GSK160643

PATIENT
  Age: 30 Year
  Sex: Female
  Weight: 146 kg

DRUGS (6)
  1. TRIAMCINOLONE ACETONIDE [Suspect]
     Active Substance: TRIAMCINOLONE ACETONIDE
     Indication: Product used for unknown indication
  2. PREDNISONE [Suspect]
     Active Substance: PREDNISONE
     Indication: Asthma
     Route: 055
  3. FLUTICASONE PROPIONATE [Suspect]
     Active Substance: FLUTICASONE PROPIONATE
     Indication: Product used for unknown indication
     Route: 065
  4. METHADONE [Concomitant]
     Active Substance: METHADONE HYDROCHLORIDE
     Indication: Product used for unknown indication
     Route: 065
  5. BUPROPION [Concomitant]
     Active Substance: BUPROPION
     Indication: Product used for unknown indication
     Route: 065
  6. LEVOTHYROXINE [Concomitant]
     Active Substance: LEVOTHYROXINE
     Indication: Product used for unknown indication
     Route: 065

REACTIONS (12)
  - Factitious disorder [Unknown]
  - Cushing^s syndrome [Unknown]
  - Abnormal weight gain [Unknown]
  - Hair growth abnormal [Unknown]
  - Menstruation irregular [Unknown]
  - Skin striae [Unknown]
  - Heavy menstrual bleeding [Unknown]
  - Plethoric face [Unknown]
  - Hirsutism [Unknown]
  - Central obesity [Unknown]
  - Oedema [Unknown]
  - Arthralgia [Unknown]
